FAERS Safety Report 25500429 (Version 1)
Quarter: 2025Q2

REPORT INFORMATION
  Report Type: Spontaneous
  Country: US (occurrence: None)
  Receive Date: 20250629
  Receipt Date: 20250629
  Transmission Date: 20250717
  Serious: Yes (Disabling)
  Sender: FDA-CTU
  Company Number: None

PATIENT
  Age: 42 Year
  Sex: Female
  Weight: 99.9 kg

DRUGS (1)
  1. ENBREL [Suspect]
     Active Substance: ETANERCEPT

REACTIONS (8)
  - Nervous system disorder [None]
  - Weight increased [None]
  - Job dissatisfaction [None]
  - Cartilage injury [None]
  - Headache [None]
  - Muscle tightness [None]
  - Visual impairment [None]
  - Therapy change [None]

NARRATIVE: CASE EVENT DATE: 20211201
